FAERS Safety Report 9537445 (Version 1)
Quarter: 2013Q3

REPORT INFORMATION
  Report Type: Spontaneous
  Country: US (occurrence: US)
  Receive Date: 20130919
  Receipt Date: 20130919
  Transmission Date: 20140515
  Serious: Yes (Hospitalization)
  Sender: FDA-Public Use
  Company Number: US-GLAXOSMITHKLINE-A1041747A

PATIENT
  Age: 64 Year
  Sex: Female

DRUGS (11)
  1. ADVAIR [Suspect]
     Indication: CHRONIC OBSTRUCTIVE PULMONARY DISEASE
     Dosage: 1PUFF TWICE PER DAY
     Route: 055
     Dates: end: 201306
  2. ANTIBIOTICS [Suspect]
     Indication: LUNG INFECTION
     Route: 065
  3. PROAIR HFA [Concomitant]
     Route: 055
  4. ALBUTEROL SOLUTION [Concomitant]
     Route: 055
  5. OXYCONTIN [Concomitant]
  6. OMEPRAZOLE [Concomitant]
  7. LISINOPRIL [Concomitant]
  8. FISH OIL [Concomitant]
  9. DOCOSAHEXAENOIC ACID [Concomitant]
  10. UNSPECIFIED MEDICATION [Concomitant]
  11. ALPHAGAN [Concomitant]

REACTIONS (14)
  - Spinal fusion surgery [Unknown]
  - Lung infection [Unknown]
  - Spinal column injury [Unknown]
  - Osteoporosis [Unknown]
  - Bone pain [Unknown]
  - Eye disorder [Unknown]
  - Dyspnoea [Unknown]
  - Chest pain [Unknown]
  - Foot fracture [Unknown]
  - Ankle fracture [Unknown]
  - Arthralgia [Unknown]
  - Musculoskeletal discomfort [Unknown]
  - Bone disorder [Unknown]
  - Bone loss [Unknown]
